FAERS Safety Report 5257822-7 (Version None)
Quarter: 2007Q1

REPORT INFORMATION
  Report Type: 
  Country: None (occurrence: None)
  Receive Date: 20070307
  Receipt Date: 20070226
  Transmission Date: 20070707
  Serious: Yes (Death, Life-Threatening)
  Sender: FDA-Public Use
  Company Number: JP-PFIZER INC-2007004198

PATIENT
  Age: 16 Year
  Sex: Female

DRUGS (1)
  1. ZOLOFT [Suspect]
     Dosage: DAILY DOSE:50MG
     Route: 048
     Dates: start: 20060909, end: 20061001

REACTIONS (1)
  - COMPLETED SUICIDE [None]
